FAERS Safety Report 4767165-3 (Version None)
Quarter: 2005Q3

REPORT INFORMATION
  Report Type: 
  Country: None (occurrence: None)
  Receive Date: 20050913
  Receipt Date: 20050902
  Transmission Date: 20060218
  Serious: Yes (Hospitalization, Other)
  Sender: FDA-Public Use
  Company Number: PHNR2005AU01348

PATIENT
  Age: 49 Year
  Sex: Female

DRUGS (1)
  1. CLOZARIL [Suspect]
     Dosage: 0 - 12.5 MG/DAY
     Dates: start: 20050825, end: 20050828

REACTIONS (5)
  - DYSPHAGIA [None]
  - DYSTONIA [None]
  - HYPOTENSION [None]
  - JOINT STIFFNESS [None]
  - SEDATION [None]
